FAERS Safety Report 5262614-9 (Version None)
Quarter: 2007Q1

REPORT INFORMATION
  Report Type: 
  Country: None (occurrence: None)
  Receive Date: 20070312
  Receipt Date: 20070305
  Transmission Date: 20070707
  Serious: Yes (Other)
  Sender: FDA-Public Use
  Company Number: HQWYE830106MAR07

PATIENT
  Age: 56 Year
  Sex: Female

DRUGS (2)
  1. PREMARIN [Suspect]
     Indication: VAGINAL RELAXATION
     Dosage: ONE FULL APPLICATOR NIGHTLY
     Route: 067
     Dates: start: 20061201, end: 20070201
  2. IBUPROFEN [Concomitant]
     Indication: ARTHRALGIA
     Dosage: UNSPECIFIED STRENGTH; TAKEN PRN (AS NEEDED)
     Route: 065

REACTIONS (1)
  - ENDOMETRIAL CANCER METASTATIC [None]
